FAERS Safety Report 8659717 (Version 6)
Quarter: 2012Q4

REPORT INFORMATION
  Report Type: 
  Country: JP (occurrence: JP)
  Receive Date: 20120711
  Receipt Date: 20121210
  Transmission Date: 20130627
  Serious: Yes (Other)
  Sender: FDA-Public Use
  Company Number: JP-PFIZER INC-2012160855

PATIENT
  Age: 77 Year
  Sex: Female

DRUGS (9)
  1. LYRICA [Suspect]
     Indication: PAIN
     Dosage: 75 mg, 2x/day
     Route: 048
     Dates: start: 20120627, end: 20120704
  2. MYSLEE [Concomitant]
     Indication: INSOMNIA
     Dosage: 10 mg, 1x/day
     Route: 048
  3. ALOSENN [Concomitant]
     Indication: CONSTIPATION
     Dosage: 1 g, UNK
     Route: 048
  4. EBASTEL OD [Concomitant]
     Indication: ALLERGY
     Dosage: 10 mg, 1x/day
     Route: 048
  5. OMEPRAL [Concomitant]
     Indication: GASTRIC ULCER
     Dosage: 20 mg, 1x/day
     Route: 048
  6. PAXIL [Concomitant]
     Indication: DEPRESSION
     Dosage: 10 mg, 1x/day
     Route: 048
  7. WYPAX [Concomitant]
     Indication: INSOMNIA
     Dosage: 0.5 mg, 1x/day
     Route: 048
  8. MEVALOTIN [Concomitant]
     Indication: HYPERCHOLESTEREMIA
     Dosage: 10 mg, 1x/day
     Route: 048
  9. CELECOX [Concomitant]
     Indication: PAIN
     Dosage: 200 mg, 2x/day
     Route: 048

REACTIONS (1)
  - Convulsion [Recovered/Resolved]
